FAERS Safety Report 8313085-7 (Version None)
Quarter: 2012Q2

REPORT INFORMATION
  Report Type: 
  Country: None (occurrence: None)
  Receive Date: 20120426
  Receipt Date: 20120423
  Transmission Date: 20120825
  Serious: Yes (Other)
  Sender: FDA-Public Use
  Company Number: US-PFIZER INC-2012100372

PATIENT
  Sex: Female
  Weight: 68 kg

DRUGS (1)
  1. AMLODIPINE BESILATE [Suspect]
     Dosage: 5 MG, ONCE A DAY
     Route: 048
     Dates: end: 20120420

REACTIONS (8)
  - FATIGUE [None]
  - HYPERTENSION [None]
  - HEADACHE [None]
  - MALAISE [None]
  - TREMOR [None]
  - FEELING ABNORMAL [None]
  - FEELING JITTERY [None]
  - PRESYNCOPE [None]
